FAERS Safety Report 9180499 (Version 2)
Quarter: 2013Q2

REPORT INFORMATION
  Report Type: Spontaneous
  Country: US (occurrence: US)
  Receive Date: 20130322
  Receipt Date: 20130418
  Transmission Date: 20140414
  Serious: No
  Sender: FDA-Public Use
  Company Number: US-009507513-1303USA009386

PATIENT
  Sex: 0

DRUGS (5)
  1. JANUVIA [Suspect]
     Indication: DIABETES MELLITUS
     Dosage: UNK
     Route: 048
     Dates: end: 2013
  2. JANUMET [Suspect]
     Indication: DIABETES MELLITUS
     Dosage: UNK
     Route: 048
     Dates: end: 2013
  3. VICTOZA [Suspect]
     Indication: DIABETES MELLITUS
     Dosage: UNK
     Dates: end: 2013
  4. ONGLYZA [Suspect]
     Indication: DIABETES MELLITUS
     Dosage: UNK
     Dates: end: 2013
  5. TRADJENTA [Suspect]
     Indication: DIABETES MELLITUS
     Dosage: UNK
     Dates: end: 2013

REACTIONS (1)
  - Dermatitis exfoliative [Recovered/Resolved]
